FAERS Safety Report 14895578 (Version 2)
Quarter: 2018Q2

REPORT INFORMATION
  Report Type: Spontaneous
  Country: AR (occurrence: AR)
  Receive Date: 20180515
  Receipt Date: 20180618
  Transmission Date: 20180711
  Serious: Yes (Hospitalization, Other)
  Sender: FDA-Public Use
  Company Number: PHHY2018AR008039

PATIENT
  Age: 59 Year
  Sex: Female

DRUGS (1)
  1. REVOLADE [Suspect]
     Active Substance: ELTROMBOPAG
     Indication: IMMUNE THROMBOCYTOPENIC PURPURA
     Dosage: 1 DF, 3 TIMES A WEEK
     Route: 065
     Dates: start: 20171101

REACTIONS (5)
  - Haemolytic anaemia [Recovering/Resolving]
  - Coombs test positive [Recovering/Resolving]
  - Blood lactate dehydrogenase increased [Recovering/Resolving]
  - Reticulocyte count increased [Recovering/Resolving]
  - Platelet count decreased [Unknown]

NARRATIVE: CASE EVENT DATE: 20180323
